FAERS Safety Report 5635487-X (Version None)
Quarter: 2008Q1

REPORT INFORMATION
  Report Type: 
  Country: None (occurrence: None)
  Receive Date: 20080222
  Receipt Date: 20080212
  Transmission Date: 20080703
  Serious: Yes (Hospitalization)
  Sender: FDA-Public Use
  Company Number: US-PFIZER INC-2008014223

PATIENT
  Sex: Male
  Weight: 109 kg

DRUGS (5)
  1. DILANTIN [Suspect]
     Indication: CEREBROVASCULAR ACCIDENT
  2. DILANTIN [Suspect]
     Indication: GRAND MAL CONVULSION
  3. NORVASC [Concomitant]
  4. TOPROL-XL [Concomitant]
  5. KEPPRA [Concomitant]

REACTIONS (4)
  - AGGRESSION [None]
  - DIZZINESS [None]
  - MIGRAINE [None]
  - NAUSEA [None]
